FAERS Safety Report 9466744 (Version 2)
Quarter: 2013Q3

REPORT INFORMATION
  Report Type: Report from Study
  Country: NL (occurrence: NL)
  Receive Date: 20130820
  Receipt Date: 20130820
  Transmission Date: 20140515
  Serious: Yes (Other)
  Sender: FDA-Public Use
  Company Number: NL-ABBOTT-12P-114-1007902-00

PATIENT
  Age: 45 Year
  Sex: Female
  Weight: 59 kg

DRUGS (2)
  1. LUCRIN [Suspect]
     Indication: LEIOMYOMA
     Route: 058
     Dates: start: 20120815, end: 20130325
  2. LUCRIN [Suspect]
     Indication: LEIOMYOMA
     Route: 058
     Dates: start: 20120712, end: 20120712

REACTIONS (7)
  - Hysterectomy [Recovered/Resolved]
  - Constipation [Recovered/Resolved]
  - Menstruation irregular [Recovered/Resolved]
  - Hot flush [Recovered/Resolved]
  - Cystitis [Recovered/Resolved]
  - Drug effect incomplete [Recovered/Resolved]
  - Bladder irritation [Recovered/Resolved]
